FAERS Safety Report 6700308-0 (Version None)
Quarter: 2010Q2

REPORT INFORMATION
  Report Type: 
  Country: None (occurrence: None)
  Receive Date: 20100428
  Receipt Date: 20100421
  Transmission Date: 20101027
  Serious: Yes (Hospitalization, Other)
  Sender: FDA-Public Use
  Company Number: FR-BAYER-201023044GPV

PATIENT
  Age: 53 Year
  Sex: Female

DRUGS (5)
  1. CIPROFLOXACIN HCL [Suspect]
     Indication: URINARY TRACT INFECTION
     Dosage: TOTAL DAILY DOSE: 1000 MG  UNIT DOSE: 500 MG
     Route: 048
     Dates: start: 20100305, end: 20100310
  2. BUPRENORPHINE ARROW [Concomitant]
     Indication: DRUG USE FOR UNKNOWN INDICATION
  3. ATARAX [Concomitant]
     Indication: DRUG USE FOR UNKNOWN INDICATION
  4. MOPRAL [Concomitant]
     Indication: DRUG USE FOR UNKNOWN INDICATION
  5. ALDACTONE [Concomitant]
     Indication: DRUG USE FOR UNKNOWN INDICATION

REACTIONS (6)
  - ALTERED STATE OF CONSCIOUSNESS [None]
  - DISTURBANCE IN ATTENTION [None]
  - HEPATIC FAILURE [None]
  - PSYCHOMOTOR RETARDATION [None]
  - PSYCHOMOTOR SKILLS IMPAIRED [None]
  - SOMNOLENCE [None]
